FAERS Safety Report 16035449 (Version 1)
Quarter: 2019Q1

REPORT INFORMATION
  Report Type: Spontaneous
  Country: US (occurrence: US)
  Receive Date: 20190206
  Receipt Date: 20190206
  Transmission Date: 20190418
  Serious: Yes (Other)
  Sender: FDA-Public Use
  Company Number: None

PATIENT

DRUGS (1)
  1. ELIQUIS [Suspect]
     Active Substance: APIXABAN
     Indication: PULMONARY EMBOLISM
     Dosage: ?          QUANTITY:2.5 MG MILLIGRAM(S);?
     Dates: start: 201805

REACTIONS (6)
  - Muscle atrophy [None]
  - Alopecia [None]
  - Asthenia [None]
  - Hypoaesthesia [None]
  - Feeling cold [None]
  - Pruritus [None]
